FAERS Safety Report 7572105-8 (Version None)
Quarter: 2011Q2

REPORT INFORMATION
  Report Type: 
  Country: None (occurrence: None)
  Receive Date: 20110624
  Receipt Date: 20110620
  Transmission Date: 20111010
  Serious: Yes (Life-Threatening)
  Sender: FDA-Public Use
  Company Number: AU-ASTRAZENECA-2011SE33563

PATIENT
  Age: 79 Year
  Sex: Male

DRUGS (5)
  1. SYMBICORT [Suspect]
     Dosage: 200/6 2 PUFFS TWICE A DAY
     Route: 055
  2. SALBUTAMOL NEBULIZER [Concomitant]
     Dosage: 3 TO 4 HOUTLY
  3. VERPAMIL HCL [Concomitant]
  4. PERINDOPRIL ERBUMINE [Concomitant]
  5. PREDNISOLONE [Concomitant]

REACTIONS (2)
  - DYSPNOEA [None]
  - PRODUCT QUALITY ISSUE [None]
